FAERS Safety Report 16786014 (Version 1)
Quarter: 2019Q3

REPORT INFORMATION
  Report Type: Spontaneous
  Country: US (occurrence: US)
  Receive Date: 20190909
  Receipt Date: 20190909
  Transmission Date: 20191005
  Serious: Yes (Hospitalization, Other)
  Sender: FDA-Public Use
  Company Number: US-PFIZER INC-2019387756

PATIENT
  Age: 63 Year
  Sex: Male
  Weight: 71.67 kg

DRUGS (4)
  1. VENETOCLAX. [Concomitant]
     Active Substance: VENETOCLAX
     Dosage: UNK
  2. VFEND [Suspect]
     Active Substance: VORICONAZOLE
     Dosage: 600 MG, 1X/DAY(200MG, TWO PILLS A DAY AND 50MG, 4 PILLS A DAY)
     Dates: start: 20190803
  3. LASIX [Concomitant]
     Active Substance: FUROSEMIDE
     Dosage: UNK
  4. VFEND [Suspect]
     Active Substance: VORICONAZOLE
     Dosage: 400 MG, 1X/DAY
     Dates: start: 20190817

REACTIONS (3)
  - Drug level increased [Recovered/Resolved]
  - Cardiac failure [Unknown]
  - Weight increased [Not Recovered/Not Resolved]

NARRATIVE: CASE EVENT DATE: 201908
